FAERS Safety Report 6712006-8 (Version None)
Quarter: 2010Q2

REPORT INFORMATION
  Report Type: 
  Country: None (occurrence: None)
  Receive Date: 20100505
  Receipt Date: 20100426
  Transmission Date: 20101027
  Serious: Yes (Other)
  Sender: FDA-Public Use
  Company Number: US-PFIZER INC-2010036879

PATIENT
  Sex: Male

DRUGS (1)
  1. DILANTIN [Suspect]
     Indication: INFECTION
     Dosage: UNK
     Route: 048
     Dates: start: 20050101, end: 20100101

REACTIONS (3)
  - GENITAL RASH [None]
  - PROSTATIC SPECIFIC ANTIGEN INCREASED [None]
  - RASH GENERALISED [None]
